FAERS Safety Report 9792822 (Version 1)
Quarter: 2013Q4

REPORT INFORMATION
  Report Type: Spontaneous
  Country: CA (occurrence: None)
  Receive Date: 20131231
  Receipt Date: 20131231
  Transmission Date: 20140711
  Serious: Yes (Life-Threatening, Hospitalization, Disabling)
  Sender: FDA-Public Use
  Company Number: None

PATIENT
  Age: 55 Year
  Sex: Female
  Weight: 56.7 kg

DRUGS (1)
  1. JANUMET [Suspect]
     Indication: DIABETES MELLITUS
     Dosage: 1 PILL

REACTIONS (7)
  - Muscular weakness [None]
  - Dizziness [None]
  - Fall [None]
  - Loss of consciousness [None]
  - Muscle atrophy [None]
  - Nervous system disorder [None]
  - Atrophy [None]
